FAERS Safety Report 26181349 (Version 1)
Quarter: 2025Q4

REPORT INFORMATION
  Report Type: Spontaneous
  Country: CN (occurrence: CN)
  Receive Date: 20251221
  Receipt Date: 20251221
  Transmission Date: 20260117
  Serious: Yes (Death, Hospitalization, Other)
  Sender: COHERUS
  Company Number: CN-SHANGHAI JUNSHI BIOSCIENCES CO., LTD.-CN2025016937

PATIENT

DRUGS (9)
  1. TORIPALIMAB [Suspect]
     Active Substance: TORIPALIMAB
     Indication: Lung squamous cell carcinoma stage III
     Dosage: 200 MG, Q3W, D1, 2 CYCLES
     Route: 041
     Dates: start: 202302
  2. TORIPALIMAB [Suspect]
     Active Substance: TORIPALIMAB
     Dosage: 200 MG, Q3W, D1, 4 CYCLES
     Route: 041
     Dates: start: 202305
  3. PACLITAXEL [Suspect]
     Active Substance: PACLITAXEL
     Indication: Lung squamous cell carcinoma stage III
     Dosage: 300 MG, Q3W, D1, 2 CYCLES
     Route: 041
     Dates: start: 202302
  4. PACLITAXEL [Suspect]
     Active Substance: PACLITAXEL
     Dosage: 300 MG, Q3W, D1, 2 CYCLES
     Route: 041
     Dates: start: 202305
  5. NEDAPLATIN [Suspect]
     Active Substance: NEDAPLATIN
     Indication: Lung squamous cell carcinoma stage III
     Dosage: 100 MG, Q3W, D1, 2 CYCLES
     Route: 041
     Dates: start: 202302
  6. NEDAPLATIN [Suspect]
     Active Substance: NEDAPLATIN
     Dosage: 100 MG, Q3W, D1, 2 CYCLES
     Route: 041
     Dates: start: 202305
  7. CATEQUENTINIB [Suspect]
     Active Substance: CATEQUENTINIB
     Indication: Lung squamous cell carcinoma stage III
     Dosage: 12 MG, Q3W(D1-14), 4 CYCLES
     Route: 041
     Dates: start: 202302
  8. CATEQUENTINIB [Suspect]
     Active Substance: CATEQUENTINIB
     Dosage: 12 MG, Q3W(D1-14), 4 CYCLES
     Route: 041
     Dates: start: 202308
  9. SINTILIMAB [Suspect]
     Active Substance: SINTILIMAB
     Indication: Lung squamous cell carcinoma stage III
     Dosage: 200 MG, Q3W, D1, 4 CYCLES
     Dates: start: 202308

REACTIONS (3)
  - Immune-mediated encephalitis [Fatal]
  - Immune-mediated lung disease [Unknown]
  - Myocardial injury [Unknown]

NARRATIVE: CASE EVENT DATE: 20231201
